FAERS Safety Report 18284002 (Version 1)
Quarter: 2020Q3

REPORT INFORMATION
  Report Type: Spontaneous
  Country: US (occurrence: US)
  Receive Date: 20200918
  Receipt Date: 20200918
  Transmission Date: 20201103
  Serious: No
  Sender: FDA-Public Use
  Company Number: US-ALLERGAN-2016312US

PATIENT
  Age: 7 Year
  Sex: Male
  Weight: 26.5 kg

DRUGS (3)
  1. ZENPEP [Suspect]
     Active Substance: PANCRELIPASE AMYLASE\PANCRELIPASE LIPASE\PANCRELIPASE PROTEASE
     Indication: CYSTIC FIBROSIS
     Dosage: 15 PILLS A DAY OF 20,000 UNITS TOTALLING 300,000
     Route: 048
  2. MEGACE [Concomitant]
     Active Substance: MEGESTROL ACETATE
  3. VITAMIN D [Concomitant]
     Active Substance: VITAMIN D NOS

REACTIONS (4)
  - Abnormal behaviour [Recovering/Resolving]
  - Prescribed overdose [Unknown]
  - Bruxism [Recovering/Resolving]
  - Abnormal faeces [Recovered/Resolved]

NARRATIVE: CASE EVENT DATE: 201809
